FAERS Safety Report 4735618-X (Version None)
Quarter: 2005Q3

REPORT INFORMATION
  Report Type: 
  Country: None (occurrence: None)
  Receive Date: 20050805
  Receipt Date: 20050627
  Transmission Date: 20060218
  Serious: Yes (Death, Congenital Anomaly, Other)
  Sender: FDA-Public Use
  Company Number: US-GLAXOSMITHKLINE-A0564287B

PATIENT
  Sex: Female

DRUGS (2)
  1. PAXIL [Suspect]
     Indication: GENERALISED ANXIETY DISORDER
     Dosage: 15MG PER DAY
     Dates: start: 20000801, end: 20040301
  2. AMBIEN [Concomitant]

REACTIONS (5)
  - ABORTION INDUCED [None]
  - AMNIOTIC FLUID VOLUME DECREASED [None]
  - CONGENITAL GENITOURINARY ABNORMALITY [None]
  - DRUG EXPOSURE DURING PREGNANCY [None]
  - RENAL CYST [None]
